FAERS Safety Report 9750297 (Version 1)
Quarter: 2013Q4

REPORT INFORMATION
  Report Type: Spontaneous
  Country: US (occurrence: US)
  Receive Date: 20131212
  Receipt Date: 20131212
  Transmission Date: 20140711
  Serious: No
  Sender: FDA-Public Use
  Company Number: US-BIOGENIDEC-2013BI099761

PATIENT
  Sex: Male

DRUGS (8)
  1. TECFIDERA [Suspect]
     Indication: PRODUCT USED FOR UNKNOWN INDICATION
     Route: 048
     Dates: start: 20130715, end: 20130722
  2. TECFIDERA [Suspect]
     Indication: PRODUCT USED FOR UNKNOWN INDICATION
     Route: 048
     Dates: start: 20130723
  3. GARLIC OIL [Concomitant]
  4. PREDNISONE [Concomitant]
  5. GRAPE SEED [Concomitant]
  6. FISH OIL [Concomitant]
  7. MAGNESIUM [Concomitant]
  8. VITAMIN B COMPLEX [Concomitant]

REACTIONS (2)
  - Constipation [Not Recovered/Not Resolved]
  - Headache [Unknown]
